FAERS Safety Report 9700540 (Version 2)
Quarter: 2013Q4

REPORT INFORMATION
  Report Type: Report from Study
  Country: US (occurrence: US)
  Receive Date: 20131121
  Receipt Date: 20131121
  Transmission Date: 20140711
  Serious: Yes (Hospitalization, Other)
  Sender: FDA-Public Use
  Company Number: PHHY2013US114039

PATIENT
  Age: 63 Year
  Sex: Male

DRUGS (15)
  1. EVEROLIMUS [Suspect]
     Indication: METASTATIC MALIGNANT MELANOMA
     Dosage: 5 MG, DAILY, 3 TIMES A WEEK
     Route: 048
     Dates: start: 20130603
  2. EVEROLIMUS [Suspect]
     Route: 048
     Dates: start: 20130919
  3. EVEROLIMUS [Suspect]
     Route: 048
     Dates: start: 20131005
  4. PACLITAXEL [Suspect]
     Indication: METASTATIC MALIGNANT MELANOMA
     Dosage: 80 MG/M2 OVER 60 MIN
     Route: 042
     Dates: start: 20130603
  5. PACLITAXEL [Suspect]
     Dosage: 40 MG/M2, UNK
     Route: 042
     Dates: start: 20130918
  6. PACLITAXEL [Suspect]
     Route: 042
     Dates: start: 20131003
  7. PACLITAXEL [Suspect]
     Route: 042
     Dates: start: 20131022
  8. CARBOPLATIN [Suspect]
     Indication: METASTATIC MALIGNANT MELANOMA
     Dosage: 600 MG, AUC OF 5 OVER 30 MIN
     Route: 042
     Dates: start: 20130603
  9. CARBOPLATIN [Suspect]
     Dosage: 600 MG, UNK
     Route: 042
     Dates: start: 20130918
  10. BEVACIZUMAB [Suspect]
     Indication: METASTATIC MALIGNANT MELANOMA
     Dosage: 10 MG/KG, OVER 90 MIN
     Route: 042
     Dates: start: 20130603
  11. BEVACIZUMAB [Suspect]
     Dosage: 1257 MG, TOTAL DOSE
     Route: 042
     Dates: start: 20130918
  12. LISINOPRIL [Concomitant]
  13. OMEPRAZOLE [Concomitant]
  14. ONDANSETRON [Concomitant]
  15. TAPENTADOL [Concomitant]

REACTIONS (6)
  - Pancreatitis [Not Recovered/Not Resolved]
  - Nausea [Not Recovered/Not Resolved]
  - Vomiting [Not Recovered/Not Resolved]
  - Abdominal pain upper [Not Recovered/Not Resolved]
  - Diarrhoea [Not Recovered/Not Resolved]
  - Nodule [Unknown]
